FAERS Safety Report 5670959-3 (Version None)
Quarter: 2008Q1

REPORT INFORMATION
  Report Type: 
  Country: None (occurrence: None)
  Receive Date: 20080313
  Receipt Date: 20080304
  Transmission Date: 20080703
  Serious: Yes (Other)
  Sender: FDA-Public Use
  Company Number: 024614

PATIENT
  Age: 27 Year
  Sex: Female

DRUGS (2)
  1. CLARAVIS [Suspect]
     Dosage: 30 MG, QD, ORAL; 40 MG, QD, ORAL
     Route: 048
     Dates: start: 20080101, end: 20080201
  2. CLARAVIS [Suspect]
     Dosage: 30 MG, QD, ORAL; 40 MG, QD, ORAL
     Route: 048
     Dates: start: 20070919

REACTIONS (1)
  - OCULAR NEOPLASM [None]
